FAERS Safety Report 10136542 (Version 1)
Quarter: 2014Q2

REPORT INFORMATION
  Report Type: Spontaneous
  Country: KR (occurrence: None)
  Receive Date: 20140425
  Receipt Date: 20140425
  Transmission Date: 20141212
  Serious: Yes (Life-Threatening, Hospitalization)
  Sender: FDA-Public Use
  Company Number: FK201401382

PATIENT
  Age: 11 Year
  Sex: Female

DRUGS (5)
  1. VALPROATE (MANUFACTURER UNKNOWN) (VALPROATE SODIUM) (VALPROATE SODIUM) [Suspect]
     Indication: PRODUCT USED FOR UNKNOWN INDICATION
  2. LAMOTRIGINE (LAMOTRIGINE) [Suspect]
     Indication: PRODUCT USED FOR UNKNOWN INDICATION
     Dosage: 3 WEEKS BEFORE HOSPITALIZATION
  3. FLUOXETIN (FLUOXETINE HYDROCHLORIDE) [Concomitant]
  4. RISPERIDONE (RISPERIDONE) [Concomitant]
  5. ARIPIPRAZOLE (ARIPIPRAZOLE) (ARIPIPRAZOLE) [Concomitant]

REACTIONS (2)
  - Toxic epidermal necrolysis [None]
  - Drug interaction [None]
